FAERS Safety Report 18671614 (Version 2)
Quarter: 2021Q1

REPORT INFORMATION
  Report Type: Spontaneous
  Country: US (occurrence: US)
  Receive Date: 20201229
  Receipt Date: 20210107
  Transmission Date: 20210419
  Serious: No
  Sender: FDA-Public Use
  Company Number: US-AMGEN-USA-20200503407

PATIENT
  Age: 48 Year
  Sex: Female

DRUGS (1)
  1. OTEZLA [Suspect]
     Active Substance: APREMILAST
     Indication: PSORIASIS
     Dosage: 30 MILLIGRAM, BID
     Route: 048
     Dates: start: 20191116

REACTIONS (6)
  - Psoriasis [Not Recovered/Not Resolved]
  - Malaise [Not Recovered/Not Resolved]
  - Product dose omission issue [Unknown]
  - Depression [Not Recovered/Not Resolved]
  - Nausea [Not Recovered/Not Resolved]
  - Pain in extremity [Not Recovered/Not Resolved]

NARRATIVE: CASE EVENT DATE: 202004
